FAERS Safety Report 6877856-6 (Version None)
Quarter: 2010Q3

REPORT INFORMATION
  Report Type: 
  Country: None (occurrence: None)
  Receive Date: 20100727
  Receipt Date: 20100714
  Transmission Date: 20110219
  Serious: Yes (Other)
  Sender: FDA-Public Use
  Company Number: PHHY2010US46813

PATIENT
  Sex: Male
  Weight: 91.17 kg

DRUGS (2)
  1. VALTURNA [Suspect]
     Indication: HYPERTENSION
     Dosage: 300/320 MG DAILY
     Route: 048
     Dates: start: 20100616, end: 20100713
  2. ZIAC [Suspect]
     Dosage: UNK
     Dates: start: 20100616

REACTIONS (2)
  - BLOOD PRESSURE INCREASED [None]
  - OEDEMA PERIPHERAL [None]
